FAERS Safety Report 24022993 (Version 5)
Quarter: 2024Q3

REPORT INFORMATION
  Report Type: Spontaneous
  Country: CA (occurrence: CA)
  Receive Date: 20240627
  Receipt Date: 20240710
  Transmission Date: 20241016
  Serious: No
  Sender: ROCHE
  Company Number: CA-ROCHE-3466220

PATIENT
  Age: 77 Year
  Sex: Male

DRUGS (1)
  1. VABYSMO [Suspect]
     Active Substance: FARICIMAB\FARICIMAB-SVOA
     Indication: Neovascular age-related macular degeneration
     Dosage: DATE OF INJECTION: 25/AUG/2023, 22.SEP/2023, 23/OCT/2023, 20/NOV/2023, 18/DEC/2023, 15/JAN/2024, 12/
     Route: 065
     Dates: start: 20230728

REACTIONS (1)
  - Vitreous floaters [Recovering/Resolving]
